FAERS Safety Report 8418461-X (Version None)
Quarter: 2012Q2

REPORT INFORMATION
  Report Type: 
  Country: None (occurrence: None)
  Receive Date: 20120607
  Receipt Date: 20120529
  Transmission Date: 20120825
  Serious: Yes (Other)
  Sender: FDA-Public Use
  Company Number: FR-ASTRAZENECA-2012SE17363

PATIENT
  Age: 8427 Day
  Sex: Male
  Weight: 68 kg

DRUGS (3)
  1. TERCIAN [Concomitant]
     Indication: ANXIOLYTIC THERAPY
     Route: 048
     Dates: start: 20110727
  2. QUETIAPINE FUMARATE [Suspect]
     Route: 048
     Dates: start: 20120410
  3. QUETIAPINE FUMARATE [Suspect]
     Indication: SCHIZOPHRENIA
     Route: 048
     Dates: start: 20111123

REACTIONS (1)
  - COMPULSIONS [None]
